FAERS Safety Report 7801953-1 (Version None)
Quarter: 2011Q4

REPORT INFORMATION
  Report Type: 
  Country: None (occurrence: None)
  Receive Date: 20111007
  Receipt Date: 20111007
  Transmission Date: 20120403
  Serious: Yes (Death, Life-Threatening, Hospitalization)
  Sender: FDA-Public Use
  Company Number: None

PATIENT
  Age: 73 Year
  Sex: Male

DRUGS (1)
  1. THYMOGLOBULIN [Suspect]
     Indication: RENAL TRANSPLANT
     Dosage: 100 MG IN 0.9PERCENT NACL
     Route: 041
     Dates: start: 20110328, end: 20110331

REACTIONS (13)
  - CARDIAC FAILURE CONGESTIVE [None]
  - LUNG INFECTION [None]
  - COLLAGEN-VASCULAR DISEASE [None]
  - MULTIFOCAL MICRONODULAR PNEUMOCYTE HYPERPLASIA [None]
  - INTERSTITIAL LUNG DISEASE [None]
  - PULMONARY EMBOLISM [None]
  - CARDIOPULMONARY FAILURE [None]
  - PNEUMOTHORAX [None]
  - ORGANISING PNEUMONIA [None]
  - COMA [None]
  - REFUSAL OF TREATMENT BY PATIENT [None]
  - LUNG DISORDER [None]
  - PULMONARY HAEMOSIDEROSIS [None]
